FAERS Safety Report 8231193-6 (Version None)
Quarter: 2012Q1

REPORT INFORMATION
  Report Type: 
  Country: None (occurrence: None)
  Receive Date: 20120323
  Receipt Date: 20120316
  Transmission Date: 20120608
  Serious: Yes (Hospitalization, Other)
  Sender: FDA-Public Use
  Company Number: US-AMGEN-USASP2012017306

PATIENT
  Age: 60 Year
  Sex: Female

DRUGS (2)
  1. ENBREL [Suspect]
     Indication: RHEUMATOID ARTHRITIS
     Dosage: 25 MG, 2 TIMES/WK
     Dates: start: 20091201
  2. NAPROXEN (ALEVE) [Concomitant]

REACTIONS (7)
  - SUPRAVENTRICULAR TACHYCARDIA [None]
  - NERVOUSNESS [None]
  - PAIN IN EXTREMITY [None]
  - ARTHRALGIA [None]
  - BLOOD PRESSURE INCREASED [None]
  - WEIGHT INCREASED [None]
  - DEPRESSION [None]
